FAERS Safety Report 23170339 (Version 4)
Quarter: 2024Q1

REPORT INFORMATION
  Report Type: Spontaneous
  Country: US (occurrence: US)
  Receive Date: 20231110
  Receipt Date: 20240125
  Transmission Date: 20240409
  Serious: No
  Sender: FDA-Public Use
  Company Number: US-BRISTOL-MYERS SQUIBB COMPANY-2023-161159

PATIENT
  Age: 54 Year
  Sex: Female

DRUGS (2)
  1. REVLIMID [Suspect]
     Active Substance: LENALIDOMIDE
     Indication: Follicular lymphoma
     Route: 048
  2. REVLIMID [Suspect]
     Active Substance: LENALIDOMIDE
     Route: 048

REACTIONS (9)
  - Off label use [Unknown]
  - Dysphagia [Unknown]
  - Dizziness [Unknown]
  - Somnolence [Unknown]
  - Swelling face [Unknown]
  - Lip swelling [Unknown]
  - Hypoaesthesia [Unknown]
  - Paranasal sinus discomfort [Unknown]
  - Ear pain [Unknown]
